FAERS Safety Report 12618553 (Version 1)
Quarter: 2016Q3

REPORT INFORMATION
  Report Type: Spontaneous
  Country: CA (occurrence: CA)
  Receive Date: 20160803
  Receipt Date: 20160803
  Transmission Date: 20161109
  Serious: Yes (Disabling)
  Sender: FDA-Public Use
  Company Number: CA-PFIZER INC-2016305288

PATIENT
  Age: 40 Year
  Sex: Female

DRUGS (2)
  1. SYNTHROID [Suspect]
     Active Substance: LEVOTHYROXINE SODIUM
     Indication: HYPOTHYROIDISM
     Dosage: 50 UG, 1X/DAY
     Route: 048
     Dates: start: 20160414
  2. CYTOMEL [Suspect]
     Active Substance: LIOTHYRONINE SODIUM
     Indication: TRI-IODOTHYRONINE DECREASED
     Dosage: 5 UG, DAILY
     Route: 048
     Dates: start: 20160603

REACTIONS (5)
  - Fatigue [Unknown]
  - Drug ineffective [Unknown]
  - Abnormal faeces [Unknown]
  - Mucous stools [Unknown]
  - Constipation [Unknown]

NARRATIVE: CASE EVENT DATE: 20160610
